FAERS Safety Report 25073381 (Version 1)
Quarter: 2025Q1

REPORT INFORMATION
  Report Type: Spontaneous
  Country: US (occurrence: US)
  Receive Date: 20250313
  Receipt Date: 20250313
  Transmission Date: 20250409
  Serious: Yes (Other)
  Sender: KRAMER LABORATORIES
  Company Number: US-KRAMERLABS-2025-US-011803

PATIENT
  Age: 41 Year
  Sex: Female
  Weight: 110.22 kg

DRUGS (2)
  1. KAOPECTATE VANILLA ANTI-DIARRHEAL [Suspect]
     Active Substance: BISMUTH SUBSALICYLATE
     Indication: Diarrhoea
     Route: 048
     Dates: start: 20250307, end: 20250307
  2. birth control (unspecified) [Concomitant]

REACTIONS (11)
  - Faeces discoloured [Recovered/Resolved]
  - Dehydration [Unknown]
  - Asthenia [Recovering/Resolving]
  - Off label use [Recovered/Resolved]
  - Generalised oedema [Recovered/Resolved]
  - Pharyngeal swelling [Unknown]
  - Pruritus [Recovered/Resolved]
  - Burning sensation [Recovered/Resolved]
  - Dyspnoea [Unknown]
  - Abdominal pain [Recovering/Resolving]
  - Panic attack [Recovered/Resolved]

NARRATIVE: CASE EVENT DATE: 20250307
